FAERS Safety Report 10076099 (Version 3)
Quarter: 2014Q2

REPORT INFORMATION
  Report Type: Spontaneous
  Country: US (occurrence: US)
  Receive Date: 20140414
  Receipt Date: 20140522
  Transmission Date: 20141212
  Serious: No
  Sender: FDA-Public Use
  Company Number: US-PFIZER INC-2014094656

PATIENT
  Sex: Female

DRUGS (1)
  1. XALKORI [Suspect]
     Dosage: 200 MG, UNK

REACTIONS (3)
  - Product quality issue [Unknown]
  - Product physical issue [Unknown]
  - Hepatitis [Unknown]
